FAERS Safety Report 5021997-5 (Version None)
Quarter: 2006Q2

REPORT INFORMATION
  Report Type: 
  Country: None (occurrence: None)
  Receive Date: 20060605
  Receipt Date: 20060524
  Transmission Date: 20061013
  Serious: Yes (Death, Other)
  Sender: FDA-Public Use
  Company Number: 2006068861

PATIENT
  Sex: Male

DRUGS (3)
  1. ZOLOFT [Suspect]
     Indication: ILL-DEFINED DISORDER
  2. REMINYL (GALANTAMINE) [Suspect]
     Indication: ILL-DEFINED DISORDER
     Dosage: 2 (2 IN 1 D)
  3. EQUANIL [Suspect]
     Indication: ILL-DEFINED DISORDER
     Dosage: 900 MG (1 IN 1 D)

REACTIONS (4)
  - AGITATION [None]
  - GLASGOW COMA SCALE ABNORMAL [None]
  - SOMNOLENCE [None]
  - WRONG DRUG ADMINISTERED [None]
